FAERS Safety Report 9471885 (Version 1)
Quarter: 2013Q3

REPORT INFORMATION
  Report Type: Spontaneous
  Country: MX (occurrence: MX)
  Receive Date: 20130823
  Receipt Date: 20130823
  Transmission Date: 20140515
  Serious: Yes (Disabling)
  Sender: FDA-Public Use
  Company Number: MX-AMGEN-MEXSP2013058870

PATIENT
  Age: 42 Year
  Sex: 0

DRUGS (4)
  1. NEULASTIM [Suspect]
     Indication: IMMUNOLOGY TEST ABNORMAL
     Dosage: UNK UNK, 1 IN 1 M
     Route: 058
     Dates: start: 20130701
  2. CHEMOTHERAPEUTICS [Concomitant]
     Indication: BREAST CANCER
     Dosage: UNK
  3. TOPIRAMATE [Concomitant]
     Indication: EPILEPSY
     Dosage: 50 MG, 1 IN 1 D
     Route: 048
  4. VALPROATE MAGNESIUM [Concomitant]
     Indication: EPILEPSY
     Dosage: 400 MG, (200 MG, 2 IN 12 HR)
     Route: 048

REACTIONS (7)
  - Fatigue [Not Recovered/Not Resolved]
  - Arthralgia [Recovered/Resolved]
  - Pain in extremity [Recovered/Resolved]
  - Dyspepsia [Not Recovered/Not Resolved]
  - Dysphagia [Not Recovered/Not Resolved]
  - Somnolence [Not Recovered/Not Resolved]
  - Temperature intolerance [Recovered/Resolved]
